FAERS Safety Report 14625921 (Version 3)
Quarter: 2018Q2

REPORT INFORMATION
  Report Type: Spontaneous
  Country: CA (occurrence: CA)
  Receive Date: 20180312
  Receipt Date: 20180517
  Transmission Date: 20180711
  Serious: Yes (Other)
  Sender: FDA-Public Use
  Company Number: CA-CELLTRION INC.-2017CA017587

PATIENT

DRUGS (5)
  1. INFLECTRA [Suspect]
     Active Substance: INFLIXIMAB-DYYB
     Dosage: 400 MG, CYCLIC (EVERY 6 WEEKS, THEN EVERY 6 WEEKS)
     Route: 042
     Dates: start: 20180104
  2. INFLECTRA [Suspect]
     Active Substance: INFLIXIMAB-DYYB
     Dosage: 400 MG, CYCLIC (EVERY 6 WEEKS, THEN EVERY 6 WEEKS)
     Route: 042
     Dates: start: 20180306
  3. INFLECTRA [Suspect]
     Active Substance: INFLIXIMAB-DYYB
     Dosage: 400 MG, CYCLIC (EVERY 6 WEEKS, THEN EVERY 6 WEEKS)
     Route: 042
     Dates: start: 20180416
  4. INFLECTRA [Suspect]
     Active Substance: INFLIXIMAB-DYYB
     Indication: ANKYLOSING SPONDYLITIS
     Dosage: 400 MG, CYCLIC (EVERY 0,2,6 WEEKS, THEN EVERY 6 WEEKS)
     Route: 042
     Dates: start: 20171123
  5. INFLECTRA [Suspect]
     Active Substance: INFLIXIMAB-DYYB
     Dosage: 400 MG, CYCLIC (EVERY 6 WEEKS, THEN EVERY 6 WEEKS)
     Route: 042
     Dates: start: 20180104

REACTIONS (13)
  - Pneumonia [Recovering/Resolving]
  - Poor venous access [Unknown]
  - Drug prescribing error [Unknown]
  - Inappropriate schedule of drug administration [Unknown]
  - Dysphonia [Unknown]
  - Nasal congestion [Unknown]
  - Malaise [Unknown]
  - Drug effect incomplete [Unknown]
  - Weight decreased [Not Recovered/Not Resolved]
  - Cough [Unknown]
  - Body temperature fluctuation [Unknown]
  - Pyrexia [Unknown]
  - Influenza [Unknown]

NARRATIVE: CASE EVENT DATE: 20171207
